FAERS Safety Report 13233196 (Version 1)
Quarter: 2017Q1

REPORT INFORMATION
  Report Type: Report from Study
  Country: AU (occurrence: AU)
  Receive Date: 20170215
  Receipt Date: 20170215
  Transmission Date: 20170428
  Serious: Yes (Death)
  Sender: FDA-Public Use
  Company Number: AU-ROCHE-GNE229955

PATIENT
  Sex: Female
  Weight: 47.05 kg

DRUGS (2)
  1. RANIBIZUMAB [Suspect]
     Active Substance: RANIBIZUMAB
     Indication: AGE-RELATED MACULAR DEGENERATION
     Route: 050
  2. VERTEPORFIN [Suspect]
     Active Substance: VERTEPORFIN
     Indication: AGE-RELATED MACULAR DEGENERATION
     Route: 042

REACTIONS (3)
  - Cardiac failure congestive [Fatal]
  - Intestinal perforation [Fatal]
  - Diverticulum [Fatal]
